FAERS Safety Report 7860515-0 (Version None)
Quarter: 2011Q4

REPORT INFORMATION
  Report Type: 
  Country: None (occurrence: None)
  Receive Date: 20111027
  Receipt Date: 20111021
  Transmission Date: 20120403
  Serious: No
  Sender: FDA-Public Use
  Company Number: US-PFIZER INC-2011255913

PATIENT
  Sex: Female
  Weight: 88.435 kg

DRUGS (1)
  1. PHENYTOIN SODIUM [Suspect]
     Indication: CONVULSION
     Dosage: 50MG AT AN UNKNOWN FREQUENCY SIX A DAY
     Dates: start: 20111001

REACTIONS (1)
  - RESTLESSNESS [None]
